FAERS Safety Report 7928011-X (Version None)
Quarter: 2011Q4

REPORT INFORMATION
  Report Type: 
  Country: None (occurrence: None)
  Receive Date: 20111118
  Receipt Date: 20111114
  Transmission Date: 20120403
  Serious: No
  Sender: FDA-Public Use
  Company Number: US-PFIZER INC-2011278414

PATIENT
  Sex: Female
  Weight: 72.562 kg

DRUGS (3)
  1. TYVASO [Suspect]
     Indication: PULMONARY ARTERIAL HYPERTENSION
     Dosage: 216 UG, UNK
     Route: 055
  2. REVATIO [Suspect]
     Dosage: UNK
  3. TRACLEER [Suspect]
     Dosage: UNK

REACTIONS (2)
  - DIZZINESS [None]
  - MALAISE [None]
